FAERS Safety Report 9765271 (Version 1)
Quarter: 2013Q4

REPORT INFORMATION
  Report Type: Spontaneous
  Country: US (occurrence: US)
  Receive Date: 20131217
  Receipt Date: 20131217
  Transmission Date: 20140711
  Serious: No
  Sender: FDA-Public Use
  Company Number: US-BIOGENIDEC-2013BI110947

PATIENT
  Age: 47 Year
  Sex: Female

DRUGS (15)
  1. TECFIDERA [Suspect]
     Indication: MULTIPLE SCLEROSIS
     Route: 048
     Dates: start: 201309
  2. REQUIP [Concomitant]
  3. LASIX [Concomitant]
  4. NORVASC [Concomitant]
  5. VOLTAREN XR [Concomitant]
  6. GABAPENTIN [Concomitant]
  7. VENLAFAXINE HCL [Concomitant]
  8. HYDRALAZINE [Concomitant]
  9. TRAZADONE [Concomitant]
  10. ZANAFLEX [Concomitant]
  11. OXYCONTIN [Concomitant]
  12. PERCOCET [Concomitant]
  13. VESICARE [Concomitant]
  14. MICROGESTIN [Concomitant]
  15. PHENERGAN [Concomitant]

REACTIONS (3)
  - Pain [Unknown]
  - Bone density decreased [Unknown]
  - Flushing [Unknown]
